FAERS Safety Report 20428935 (Version 1)
Quarter: 2022Q1

REPORT INFORMATION
  Report Type: Spontaneous
  Country: CH (occurrence: CH)
  Receive Date: 20220204
  Receipt Date: 20220204
  Transmission Date: 20220423
  Serious: Yes (Hospitalization, Other)
  Sender: FDA-Public Use
  Company Number: None

PATIENT
  Age: 27 Year
  Sex: Male

DRUGS (13)
  1. CYCLOPHOSPHAMIDE [Suspect]
     Active Substance: CYCLOPHOSPHAMIDE
     Indication: Desmoplastic small round cell tumour
     Dosage: ENDOXAN? (CYCLOPHOSPHAMID) 2500 MG IN NACL 0.9%, INTRAVENOUS APPLICATION ON 22FEB2021: IN TOTAL
     Route: 042
     Dates: start: 20210222, end: 20210222
  2. MESNA [Suspect]
     Active Substance: MESNA
     Indication: Desmoplastic small round cell tumour
     Dosage: UROMITEXAN (MESNUM) 600 MG INTRAVENOUS ADMINISTRATION ON 22FEB2021 IN TOTAL
     Route: 042
     Dates: start: 20210222, end: 20210222
  3. SODIUM CHLORIDE [Suspect]
     Active Substance: SODIUM CHLORIDE
     Indication: Medication dilution
     Dosage: ENDOXANE? (CYCLOPHOSPHAMIDE) 2500 MG IN NACL 0.9%, INTRAVENOUS ADMINISTRATION ON 22FEB2021
     Route: 042
     Dates: start: 20210222, end: 20210222
  4. SODIUM CHLORIDE [Suspect]
     Active Substance: SODIUM CHLORIDE
     Dosage: VINCRISTIN 2 MG IN NACL 0.9%, INTRAVENOUS APPLICATION ON 22FEB2021
     Route: 042
     Dates: start: 20210222, end: 20210222
  5. DEXTROSE [Suspect]
     Active Substance: DEXTROSE
     Indication: Medication dilution
     Dosage: ADRIBLASTIN? (DOXORUBICIN) 75 MG GLUCOSE 5% ON INTRAVENOUS ADMINISTRATION 22FEB2021
     Route: 042
     Dates: start: 20210222, end: 20210222
  6. DEXTROSE [Suspect]
     Active Substance: DEXTROSE
     Dosage: ADRIBLASTIN? (DOXORUBICIN) 75 MG GLUCOSE 5% ON INTRAVENOUS ADMINISTRATION
     Route: 042
     Dates: start: 20210223, end: 20210223
  7. VINCRISTINE [Suspect]
     Active Substance: VINCRISTINE
     Indication: Desmoplastic small round cell tumour
     Dosage: VINCRISTIN 2 MG IN NACL 0.9%, INTRAVENOUS APPLICATION ON 22FEB2021: IN TOTAL
     Route: 042
     Dates: start: 20210222, end: 20210222
  8. DOXORUBICIN HYDROCHLORIDE [Suspect]
     Active Substance: DOXORUBICIN HYDROCHLORIDE
     Indication: Desmoplastic small round cell tumour
     Dosage: ADRIBLASTIN? (DOXORUBICIN) 75 MG GLUCOSE 5% INTRAVENOUS APPLICATION ON; IN TOTAL
     Route: 042
     Dates: start: 20210222, end: 20210222
  9. DOXORUBICIN HYDROCHLORIDE [Suspect]
     Active Substance: DOXORUBICIN HYDROCHLORIDE
     Dosage: ADRIBLASTIN? (DOXORUBICIN) 75 MG GLUCOSE 5% INTRAVENOUS APPLICATION ON; IN TOTAL
     Route: 042
     Dates: start: 20210223, end: 20210223
  10. METAMIZOLE [Suspect]
     Active Substance: METAMIZOLE
     Indication: Pain
     Dosage: NOVALGIN? (METAMIZOLE) IN RESERVE FOR PAIN; WAS PRESCRIBED ON 24FEB2021 AS A RESERVE DRUG FOR PAIN,
     Route: 048
     Dates: start: 20210224, end: 20210224
  11. PANTOPRAZOLE [Concomitant]
     Active Substance: PANTOPRAZOLE
     Indication: Product used for unknown indication
     Dosage: PANTOPRAZOLE 40 MG 1-0-0
     Route: 048
  12. ALLOPURINOL [Concomitant]
     Active Substance: ALLOPURINOL
     Indication: Product used for unknown indication
     Dosage: ALLOPURINOL 100 MG 0-0-1
     Route: 048
  13. DAFALGAN [Concomitant]
     Active Substance: ACETAMINOPHEN
     Indication: Product used for unknown indication
     Dosage: DAFALGAN? (PARACETAMOL) FOR PAIN; AS NECESSARY
     Route: 048

REACTIONS (2)
  - Agranulocytosis [Recovered/Resolved]
  - Febrile neutropenia [Recovered/Resolved]

NARRATIVE: CASE EVENT DATE: 20210302
